FAERS Safety Report 6192713-9 (Version None)
Quarter: 2009Q2

REPORT INFORMATION
  Report Type: 
  Country: None (occurrence: None)
  Receive Date: 20090518
  Receipt Date: 20090504
  Transmission Date: 20091009
  Serious: Yes (Other)
  Sender: FDA-Public Use
  Company Number: FR-ROCHE-632092

PATIENT

DRUGS (2)
  1. CELLCEPT [Suspect]
     Indication: DRUG USE FOR UNKNOWN INDICATION
     Route: 065
  2. PROGRAF [Concomitant]

REACTIONS (2)
  - DIABETES MELLITUS [None]
  - THYROID DISORDER [None]
